FAERS Safety Report 25666697 (Version 4)
Quarter: 2025Q4

REPORT INFORMATION
  Report Type: Spontaneous
  Country: US (occurrence: US)
  Receive Date: 20250811
  Receipt Date: 20251229
  Transmission Date: 20260118
  Serious: No
  Sender: SANOFI AVENTIS
  Company Number: US-SA-2025SA233110

PATIENT
  Age: 43 Year
  Sex: Female
  Weight: 115.2 kg

DRUGS (11)
  1. DUPIXENT [Suspect]
     Active Substance: DUPILUMAB
     Indication: Asthma
     Dosage: 300 MG, QOW
     Route: 058
     Dates: start: 202507
  2. DUPIXENT [Suspect]
     Active Substance: DUPILUMAB
     Indication: Chronic rhinosinusitis with nasal polyps
  3. IBUPROFEN [Concomitant]
     Active Substance: IBUPROFEN
     Dosage: 1.000DF QD
     Route: 048
     Dates: start: 20241230
  4. FLUOCINOLONE ACETONIDE [Concomitant]
     Active Substance: FLUOCINOLONE ACETONIDE
     Dosage: QOD
     Dates: start: 20241202
  5. SYMBICORT [Concomitant]
     Active Substance: BUDESONIDE\FORMOTEROL FUMARATE DIHYDRATE
  6. ALBUTEROL [Concomitant]
     Active Substance: ALBUTEROL
     Indication: Dyspnoea
     Dosage: 2.000DF Q6H
  7. BUDESONIDE\FORMOTEROL [Concomitant]
     Active Substance: BUDESONIDE\FORMOTEROL
     Dosage: 2.000DF Q12H
     Route: 055
  8. OMEPRAZOLE [Concomitant]
     Active Substance: OMEPRAZOLE
     Dosage: 1.000DF QD
     Dates: start: 20251030
  9. FLUTICASONE [Concomitant]
     Active Substance: FLUTICASONE
     Dosage: 16 G
     Route: 045
     Dates: start: 20251030
  10. AZITHROMYCIN [Concomitant]
     Active Substance: AZITHROMYCIN
     Dosage: 1.000DF QD
  11. AZITHROMYCIN [Concomitant]
     Active Substance: AZITHROMYCIN
     Dosage: 2.000DF

REACTIONS (8)
  - Headache [Recovered/Resolved]
  - Cough [Recovered/Resolved]
  - Sleep disorder due to a general medical condition [Unknown]
  - Pain in extremity [Unknown]
  - Condition aggravated [Unknown]
  - Night sweats [Unknown]
  - Ear disorder [Unknown]
  - Incorrect dose administered [Unknown]

NARRATIVE: CASE EVENT DATE: 20250101
